FAERS Safety Report 5118620-8 (Version None)
Quarter: 2006Q4

REPORT INFORMATION
  Report Type: 
  Country: None (occurrence: None)
  Receive Date: 20061002
  Receipt Date: 20060710
  Transmission Date: 20070319
  Serious: Yes (Other)
  Sender: FDA-Public Use
  Company Number: JP-JPN-A200602565

PATIENT
  Age: 67 Year
  Sex: Male
  Weight: 47 kg

DRUGS (1)
  1. VALTREX [Suspect]
     Indication: HERPES ZOSTER
     Dosage: 1000MG THREE TIMES PER DAY
     Route: 048
     Dates: start: 20060629, end: 20060629

REACTIONS (8)
  - LOSS OF CONSCIOUSNESS [None]
  - NAUSEA [None]
  - PAIN [None]
  - RASH [None]
  - SNORING [None]
  - SOMNOLENCE [None]
  - URTICARIA [None]
  - VOMITING [None]
